FAERS Safety Report 5734806-3 (Version None)
Quarter: 2008Q2

REPORT INFORMATION
  Report Type: 
  Country: None (occurrence: None)
  Receive Date: 20080512
  Receipt Date: 20080501
  Transmission Date: 20081010
  Serious: Yes (Other)
  Sender: FDA-Public Use
  Company Number: US-JNJFOC-20060906222

PATIENT
  Sex: Female
  Weight: 136.99 kg

DRUGS (14)
  1. RISPERDAL [Suspect]
     Indication: MAJOR DEPRESSION
  2. RISPERDAL [Suspect]
     Indication: PANIC DISORDER
  3. RISPERDAL [Suspect]
     Indication: SLEEP DISORDER THERAPY
  4. RISPERDAL [Suspect]
     Indication: SUICIDAL IDEATION
  5. ZYPREXA [Suspect]
     Indication: MAJOR DEPRESSION
  6. ZYPREXA [Suspect]
     Indication: PANIC DISORDER
  7. ZYPREXA [Suspect]
     Indication: SLEEP DISORDER THERAPY
  8. ZYPREXA [Suspect]
     Indication: SUICIDAL IDEATION
  9. DEMADEX [Concomitant]
  10. EFFEXOR XR [Concomitant]
  11. NEXIUM [Concomitant]
  12. PROVENTIL [Concomitant]
  13. SINGULAIR [Concomitant]
  14. TRAZODONE HCL [Concomitant]

REACTIONS (1)
  - DIABETES MELLITUS [None]
